FAERS Safety Report 24888019 (Version 1)
Quarter: 2025Q1

REPORT INFORMATION
  Report Type: Report from Study
  Country: GB (occurrence: GB)
  Receive Date: 20250127
  Receipt Date: 20250127
  Transmission Date: 20250408
  Serious: Yes (Other)
  Sender: ROCHE
  Company Number: GB-ROCHE-10000182710

PATIENT
  Sex: Male

DRUGS (1)
  1. TOCILIZUMAB [Suspect]
     Active Substance: TOCILIZUMAB
     Indication: Rheumatoid arthritis
     Route: 058
     Dates: start: 202409

REACTIONS (10)
  - Nasopharyngitis [Unknown]
  - Arthralgia [Unknown]
  - Ill-defined disorder [Unknown]
  - Movement disorder [Unknown]
  - Eating disorder [Unknown]
  - Decreased appetite [Recovering/Resolving]
  - Retching [Unknown]
  - Pancreatic carcinoma [Unknown]
  - Disability [Unknown]
  - Joint swelling [Unknown]
